FAERS Safety Report 5605107-9 (Version None)
Quarter: 2008Q1

REPORT INFORMATION
  Report Type: 
  Country: None (occurrence: None)
  Receive Date: 20080128
  Receipt Date: 20080123
  Transmission Date: 20080703
  Serious: Yes (Death, Other)
  Sender: FDA-Public Use
  Company Number: GB-MERCK-0801GBR00042

PATIENT
  Age: 66 Year
  Sex: Female

DRUGS (2)
  1. DECADRON [Suspect]
     Indication: PROPHYLAXIS
     Route: 048
  2. PHENYTOIN [Suspect]
     Indication: PROPHYLAXIS
     Route: 065

REACTIONS (8)
  - BRAIN COMPRESSION [None]
  - DRUG INTERACTION [None]
  - GLASGOW COMA SCALE ABNORMAL [None]
  - HAEMORRHAGE INTRACRANIAL [None]
  - MENINGIOMA SURGERY [None]
  - PLATELET COUNT DECREASED [None]
  - POST PROCEDURAL COMPLICATION [None]
  - THROMBOCYTOPENIA [None]
